FAERS Safety Report 6026141-3 (Version None)
Quarter: 2008Q4

REPORT INFORMATION
  Report Type: 
  Country: None (occurrence: None)
  Receive Date: 20081230
  Receipt Date: 20081210
  Transmission Date: 20090506
  Serious: Yes (Life-Threatening)
  Sender: FDA-Public Use
  Company Number: 122023

PATIENT
  Age: 84 Year
  Sex: Female
  Weight: 66.9963 kg

DRUGS (6)
  1. MIDAZOLAM HYDROCHLORIDE INJECTION, 1MG/ML FLIPTOP VIALS (MIDAXOLAM HYD [Suspect]
     Indication: SEDATIVE THERAPY
     Dosage: 0.5 MG, ONCE, IV
     Route: 042
     Dates: start: 20081006, end: 20081006
  2. CLOPIDOGREL [Suspect]
     Indication: PERCUTANEOUS CORONARY INTERVENTION
     Dates: start: 20081001, end: 20081001
  3. (INVESTIGATIONAL DRUG) [Suspect]
     Indication: PERCUTANEOUS CORONARY INTERVENTION
     Dosage: 5 ML (BOLUS), INTRAVENOUS
     Route: 042
     Dates: start: 20081006, end: 20081006
  4. DILAUDID [Suspect]
     Indication: SEDATIVE THERAPY
     Dosage: .5 MG (ONCE), INTRAVENOUS
     Route: 042
     Dates: start: 20081006, end: 20081006
  5. (ACETYLSALICYLIC ACID) [Concomitant]
  6. (BIVALIRUDIN) [Concomitant]

REACTIONS (7)
  - BRADYCARDIA [None]
  - HYPOTENSION [None]
  - MENTAL STATUS CHANGES [None]
  - RESPIRATORY DEPRESSION [None]
  - UNRESPONSIVE TO STIMULI [None]
  - VENTRICULAR FIBRILLATION [None]
  - VENTRICULAR TACHYCARDIA [None]
